FAERS Safety Report 7405709-3 (Version None)
Quarter: 2011Q2

REPORT INFORMATION
  Report Type: 
  Country: None (occurrence: None)
  Receive Date: 20110411
  Receipt Date: 20110331
  Transmission Date: 20111010
  Serious: Yes (Death, Hospitalization)
  Sender: FDA-Public Use
  Company Number: CN-BAXTER-2011BH008916

PATIENT
  Age: 78 Year
  Sex: Female
  Weight: 40 kg

DRUGS (13)
  1. EPOGEN [Concomitant]
     Indication: PRODUCT USED FOR UNKNOWN INDICATION
     Route: 065
  2. FERROUS SUCCINATE [Concomitant]
     Indication: MINERAL SUPPLEMENTATION
     Route: 048
     Dates: start: 20110303, end: 20110331
  3. HUMAN GROWTH HORMONE, RECOMBINANT [Concomitant]
     Indication: ANAEMIA
     Route: 025
     Dates: start: 20110228, end: 20110331
  4. IRBESARTAN [Concomitant]
     Indication: HYPERTENSION
     Route: 048
     Dates: start: 20110315, end: 20110331
  5. CARVEDILOL [Concomitant]
     Indication: HYPERTENSION
     Route: 048
     Dates: start: 20110322, end: 20110331
  6. FELODIPINE [Concomitant]
     Indication: HYPERTENSION
     Route: 048
     Dates: start: 20110307, end: 20110331
  7. FOSINOPRIL SODIUM [Concomitant]
     Indication: HYPERTENSION
     Route: 048
     Dates: start: 20110311, end: 20110331
  8. DIANEAL [Suspect]
     Indication: RENAL FAILURE
     Route: 033
     Dates: start: 20110304, end: 20110331
  9. DIANEAL [Suspect]
     Indication: PERITONEAL DIALYSIS
     Route: 033
     Dates: start: 20110304, end: 20110331
  10. DIANEAL [Suspect]
     Route: 033
     Dates: start: 20110304, end: 20110331
  11. CALTRATE [Concomitant]
     Indication: MINERAL SUPPLEMENTATION
     Route: 048
     Dates: start: 20110228, end: 20110331
  12. ALPHA KETOACIDS [Concomitant]
     Indication: SUPPLEMENTATION THERAPY
     Route: 048
     Dates: start: 20110319, end: 20110331
  13. ROCALTROL [Concomitant]
     Indication: HYPERPARATHYROIDISM SECONDARY
     Route: 048
     Dates: start: 20110228, end: 20110331

REACTIONS (4)
  - PERITONITIS BACTERIAL [None]
  - DYSPNOEA [None]
  - DEATH [None]
  - CHEST DISCOMFORT [None]
